FAERS Safety Report 9190940 (Version 12)
Quarter: 2015Q1

REPORT INFORMATION
  Report Type: Report from Study
  Country: GB (occurrence: GB)
  Receive Date: 20130326
  Receipt Date: 20150106
  Transmission Date: 20150721
  Serious: Yes (Hospitalization)
  Sender: FDA-Public Use
  Company Number: GB-ROCHE-1189284

PATIENT
  Age: 39 Year
  Sex: Female
  Weight: 97 kg

DRUGS (5)
  1. DESMOPRESSIN [Concomitant]
     Active Substance: DESMOPRESSIN
     Route: 065
     Dates: start: 201208
  2. TRASTUZUMAB EMTANSINE [Suspect]
     Active Substance: ADO-TRASTUZUMAB EMTANSINE
     Indication: HER-2 POSITIVE BREAST CANCER
     Dosage: LAST DOSE PRIOR TO CHEST PAIN: 31/JAN/2013?LAST DOSE PRIOR TO VIRAL INFECTION: 290MG ON 05/FEB/2014
     Route: 042
     Dates: start: 20130131
  3. DESMOPRESSIN [Concomitant]
     Active Substance: DESMOPRESSIN
     Route: 065
     Dates: start: 20130914
  4. LANSOPRAZOLE. [Concomitant]
     Active Substance: LANSOPRAZOLE
     Route: 065
     Dates: start: 20121116
  5. CITALOPRAM [Concomitant]
     Active Substance: CITALOPRAM HYDROBROMIDE
     Route: 065
     Dates: start: 2012

REACTIONS (2)
  - Pleuritic pain [Recovered/Resolved]
  - Viral infection [Recovered/Resolved]

NARRATIVE: CASE EVENT DATE: 20130204
